FAERS Safety Report 6965339-4 (Version None)
Quarter: 2010Q3

REPORT INFORMATION
  Report Type: 
  Country: None (occurrence: None)
  Receive Date: 20100903
  Receipt Date: 20100826
  Transmission Date: 20110219
  Serious: Yes (Other)
  Sender: FDA-Public Use
  Company Number: BR-PFIZER INC-2010095176

PATIENT
  Age: 67 Year
  Sex: Male
  Weight: 78 kg

DRUGS (6)
  1. CHAMPIX [Suspect]
     Indication: TOBACCO USER
     Dosage: 0.5 MG, 1X/DAY
     Route: 048
     Dates: start: 20100730, end: 20100101
  2. CHAMPIX [Suspect]
     Dosage: 1 MG, 2X/DAY, EVERY 12 HOURS
     Route: 048
     Dates: start: 20100101
  3. SIMVASTATIN [Concomitant]
     Indication: LIPIDS
     Dosage: 20 MG, 1X/DAY
  4. ATENOLOL [Concomitant]
     Indication: BLOOD PRESSURE INCREASED
     Dosage: 25 MG, 1X/DAY
  5. SPIRIVA RESPIMAT [Concomitant]
     Indication: DYSPNOEA
     Dosage: UNK 2.5 MG INHALATION DOSE
     Dates: start: 20070101
  6. GLUCOBAY [Concomitant]
     Indication: BLOOD GLUCOSE ABNORMAL
     Dosage: 50 MG, 1X/DAY, AFTER LUNCH

REACTIONS (4)
  - BLOOD GLUCOSE DECREASED [None]
  - DEPRESSION [None]
  - NERVOUSNESS [None]
  - VISION BLURRED [None]
